FAERS Safety Report 6142776-1 (Version None)
Quarter: 2009Q2

REPORT INFORMATION
  Report Type: 
  Country: None (occurrence: None)
  Receive Date: 20090402
  Receipt Date: 20090402
  Transmission Date: 20091009
  Serious: Yes (Death)
  Sender: FDA-Public Use
  Company Number: None

PATIENT
  Age: 33 Year
  Sex: Female
  Weight: 44 kg

DRUGS (5)
  1. COVIRO LS 30 (LAMIVUDINE/STAVUDINE) [Suspect]
     Indication: HIV INFECTION
     Dosage: 300MG/60MG QD ORAL
     Route: 048
     Dates: start: 20080514, end: 20090218
  2. EFAVIRENZ [Suspect]
     Indication: HIV INFECTION
     Dosage: 600MG QD ORAL
     Route: 048
     Dates: start: 20080514, end: 20090223
  3. COTRIMOXAZOLE [Concomitant]
  4. ZIDOVUDINE [Concomitant]
  5. LAMIVUDINE [Suspect]
     Indication: HIV INFECTION
     Dosage: 300 MG QD
     Dates: start: 20090218, end: 20090223

REACTIONS (3)
  - DYSPNOEA [None]
  - LACTIC ACIDOSIS [None]
  - MITOCHONDRIAL TOXICITY [None]
